FAERS Safety Report 4742549-8 (Version None)
Quarter: 2005Q3

REPORT INFORMATION
  Report Type: 
  Country: None (occurrence: None)
  Receive Date: 20050808
  Receipt Date: 20050728
  Transmission Date: 20060218
  Serious: Yes (Death, Other)
  Sender: FDA-Public Use
  Company Number: 19653

PATIENT
  Age: 67 Year
  Sex: Male
  Weight: 48 kg

DRUGS (1)
  1. METHOTREXATE [Suspect]
     Indication: LARYNGEAL CANCER
     Dosage: 63 MG/ WEEK IV
     Route: 042
     Dates: start: 20050523, end: 20050705

REACTIONS (4)
  - ASTHENIA [None]
  - BLOOD POTASSIUM INCREASED [None]
  - BLOOD UREA INCREASED [None]
  - SUDDEN DEATH [None]
